FAERS Safety Report 9985485 (Version 1)
Quarter: 2014Q1

REPORT INFORMATION
  Report Type: Spontaneous
  Country: US (occurrence: US)
  Receive Date: 20140307
  Receipt Date: 20140307
  Transmission Date: 20141002
  Serious: No
  Sender: FDA-Public Use
  Company Number: US-GILEAD-2012-0060052

PATIENT
  Age: 28 Year
  Sex: Male

DRUGS (1)
  1. TRUVADA [Suspect]
     Indication: PROPHYLAXIS AGAINST HIV INFECTION
     Dosage: UNK
     Dates: start: 201208

REACTIONS (3)
  - Back pain [Unknown]
  - Renal pain [Unknown]
  - Hepatic pain [Unknown]
